FAERS Safety Report 12720273 (Version 1)
Quarter: 2016Q3

REPORT INFORMATION
  Report Type: Spontaneous
  Country: US (occurrence: US)
  Receive Date: 20160907
  Receipt Date: 20160907
  Transmission Date: 20161109
  Serious: Yes (Other)
  Sender: FDA-Public Use
  Company Number: None

PATIENT
  Age: 69 Year
  Sex: Female
  Weight: 54 kg

DRUGS (1)
  1. NYSTATIN-TRIAMC-INOLONE [Suspect]
     Active Substance: NYSTATIN\TRIAMCINOLONE
     Route: 061
     Dates: start: 20160830, end: 20160901

REACTIONS (2)
  - Lip swelling [None]
  - Eye swelling [None]

NARRATIVE: CASE EVENT DATE: 20160901
